FAERS Safety Report 10488594 (Version 1)
Quarter: 2014Q3

REPORT INFORMATION
  Report Type: Spontaneous
  Country: US (occurrence: None)
  Receive Date: 20140815
  Receipt Date: 20140815
  Transmission Date: 20150326
  Serious: Yes (Other)
  Sender: FDA-Public Use
  Company Number: ADR-2013-01644

PATIENT
  Age: 41 Year
  Sex: Female

DRUGS (2)
  1. BACLOFEN. [Suspect]
     Active Substance: BACLOFEN
     Indication: BACK DISORDER
  2. MS04 [Suspect]
     Active Substance: MORPHINE SULFATE

REACTIONS (5)
  - Yawning [None]
  - Diarrhoea [None]
  - Nausea [None]
  - Paraesthesia [None]
  - Drug withdrawal syndrome [None]
